FAERS Safety Report 25374845 (Version 1)
Quarter: 2025Q2

REPORT INFORMATION
  Report Type: Report from Study
  Country: US (occurrence: US)
  Receive Date: 20250529
  Receipt Date: 20250529
  Transmission Date: 20250717
  Serious: Yes (Other)
  Sender: ABBVIE
  Company Number: US-ABBVIE-6297773

PATIENT
  Age: 65 Year
  Sex: Female

DRUGS (1)
  1. QULIPTA [Suspect]
     Active Substance: ATOGEPANT
     Indication: Product used for unknown indication
     Route: 048
     Dates: start: 20230101

REACTIONS (3)
  - Neoplasm malignant [Unknown]
  - Parkinson^s disease [Unknown]
  - Migraine [Unknown]

NARRATIVE: CASE EVENT DATE: 20230101
